FAERS Safety Report 7810056-1 (Version None)
Quarter: 2011Q4

REPORT INFORMATION
  Report Type: 
  Country: None (occurrence: None)
  Receive Date: 20111012
  Receipt Date: 20110912
  Transmission Date: 20120403
  Serious: No
  Sender: FDA-Public Use
  Company Number: US-GLAXOSMITHKLINE-A0944161A

PATIENT
  Age: 77 Year
  Sex: Male

DRUGS (8)
  1. TOPROL-XL [Concomitant]
  2. GLUCOPHAGE [Concomitant]
  3. JALYN [Suspect]
     Indication: POLLAKIURIA
     Dosage: 1CAPL PER DAY
     Route: 048
     Dates: start: 20110701, end: 20110905
  4. VITAMIN B1 TAB [Concomitant]
  5. ASPIRIN [Concomitant]
  6. FOLIC ACID [Concomitant]
  7. COZAAR [Concomitant]
  8. FUROSEMIDE [Concomitant]

REACTIONS (3)
  - INFECTION [None]
  - TESTICULAR SWELLING [None]
  - TESTICULAR PAIN [None]
